FAERS Safety Report 8075308-1 (Version None)
Quarter: 2012Q1

REPORT INFORMATION
  Report Type: 
  Country: None (occurrence: None)
  Receive Date: 20120127
  Receipt Date: 20120116
  Transmission Date: 20120608
  Serious: Yes (Hospitalization)
  Sender: FDA-Public Use
  Company Number: CA-ELI_LILLY_AND_COMPANY-CA201110005420

PATIENT
  Age: 70 Year
  Sex: Female

DRUGS (15)
  1. FORTEO [Suspect]
     Indication: OSTEOPOROSIS
     Dosage: 20 UG, QD
     Route: 058
     Dates: start: 20110816
  2. ALDACTAZIDE [Concomitant]
     Dosage: 50 MG, QD
  3. PLAQUENIL [Concomitant]
     Dosage: 200 MG, BID
  4. SOFLAX [Concomitant]
     Dosage: 100 MG, BID
  5. METHOTREXATE [Concomitant]
     Dosage: 7.5 MG, UNK
  6. NORTRIPTYLINE HCL [Concomitant]
     Dosage: 30 MG, OTHER
  7. RABEPRAZOLE SODIUM [Concomitant]
     Dosage: 20 MG, QD
  8. HYDROMORPHONE HCL [Concomitant]
     Dosage: 24 MG, TID
  9. HYDROMORPHONE HCL [Concomitant]
     Dosage: 2 MG, QID
  10. FOLIC ACID [Concomitant]
     Dosage: 5 MG, WEEKLY (1/W)
  11. LEFLUNOMIDE [Concomitant]
     Dosage: 10 MG, QOD
  12. SENOKOT [Concomitant]
     Dosage: UNK, OTHER
  13. ZOPICLONE [Concomitant]
     Dosage: 7.5 MG, OTHER
  14. PREDNISONE TAB [Concomitant]
     Dosage: 15 MG, BID
  15. PAROXETINE [Concomitant]
     Dosage: 10 MG, QD

REACTIONS (8)
  - THROMBOSIS [None]
  - ERYTHEMA [None]
  - OEDEMA PERIPHERAL [None]
  - PAIN IN EXTREMITY [None]
  - MYALGIA [None]
  - GAIT DISTURBANCE [None]
  - NAUSEA [None]
  - ARTHRALGIA [None]
